FAERS Safety Report 6815589-2 (Version None)
Quarter: 2010Q3

REPORT INFORMATION
  Report Type: 
  Country: None (occurrence: None)
  Receive Date: 20100702
  Receipt Date: 20100624
  Transmission Date: 20110219
  Serious: Yes (Hospitalization, Other)
  Sender: FDA-Public Use
  Company Number: US-ROCHE-675225

PATIENT
  Sex: Female
  Weight: 41.7 kg

DRUGS (10)
  1. ACCUTANE [Suspect]
     Route: 048
     Dates: start: 19970101, end: 19970101
  2. ACCUTANE [Suspect]
     Route: 048
     Dates: start: 20041013, end: 20050113
  3. ACCUTANE [Suspect]
     Route: 048
     Dates: start: 20050301, end: 20050401
  4. AMNESTEEM [Suspect]
     Route: 048
     Dates: start: 20050404, end: 20050505
  5. SOTRET [Suspect]
     Route: 048
     Dates: start: 20050505, end: 20050801
  6. ADDERALL XR 10 [Concomitant]
     Dates: start: 20010901
  7. ADDERALL 10 [Concomitant]
     Dates: start: 20010901
  8. CELEXA [Concomitant]
     Dates: start: 20010901
  9. ORTHO TRI-CYCLEN [Concomitant]
  10. ORTHO CYCLEN-28 [Concomitant]

REACTIONS (11)
  - BLOOD CHOLESTEROL INCREASED [None]
  - BLOOD IRON DECREASED [None]
  - BLOOD TRIGLYCERIDES INCREASED [None]
  - CROHN'S DISEASE [None]
  - ILEAL STENOSIS [None]
  - INFLAMMATORY BOWEL DISEASE [None]
  - INTESTINAL FISTULA [None]
  - NEUTROPHIL COUNT INCREASED [None]
  - PLATELET COUNT INCREASED [None]
  - SMALL INTESTINAL OBSTRUCTION [None]
  - WHITE BLOOD CELL COUNT INCREASED [None]
